FAERS Safety Report 4933133-1 (Version None)
Quarter: 2006Q1

REPORT INFORMATION
  Report Type: 
  Country: None (occurrence: None)
  Receive Date: 20060106
  Receipt Date: 20050812
  Transmission Date: 20060701
  Serious: No
  Sender: FDA-Public Use
  Company Number: 200511628BWH

PATIENT
  Age: 66 Year
  Sex: Male
  Weight: 88.4514 kg

DRUGS (2)
  1. LEVITRA [Suspect]
     Indication: EJACULATION DISORDER
     Dosage: QD, ORAL
     Route: 048
  2. LEVITRA [Suspect]
     Indication: ERECTILE DYSFUNCTION
     Dosage: QD, ORAL
     Route: 048

REACTIONS (2)
  - EJACULATION DISORDER [None]
  - ERECTION INCREASED [None]
